FAERS Safety Report 24749474 (Version 1)
Quarter: 2024Q4

REPORT INFORMATION
  Report Type: Spontaneous
  Country: US (occurrence: US)
  Receive Date: 20241218
  Receipt Date: 20241218
  Transmission Date: 20250114
  Serious: No
  Sender: HERON
  Company Number: US-HERON THERAPEUTICS, INC-HRTX-2024-001068

PATIENT
  Sex: Male

DRUGS (1)
  1. APONVIE [Suspect]
     Active Substance: APREPITANT
     Indication: Prophylaxis of nausea and vomiting
     Dosage: UNK UNK, SINGLE
     Route: 042

REACTIONS (2)
  - Dysphoria [Recovered/Resolved]
  - Product use in unapproved indication [Unknown]
